FAERS Safety Report 5908845-3 (Version None)
Quarter: 2008Q3

REPORT INFORMATION
  Report Type: 
  Country: None (occurrence: None)
  Receive Date: 20080929
  Receipt Date: 20080926
  Transmission Date: 20090109
  Serious: Yes (Other)
  Sender: FDA-Public Use
  Company Number: S08-USA-01753-01

PATIENT
  Age: 55 Year
  Sex: Female

DRUGS (4)
  1. LEXAPRO [Suspect]
     Indication: DEPRESSION
     Dosage: 10 MG, (10 MG, 1 IN 1 D), ORAL
     Route: 048
     Dates: start: 20080324, end: 20080506
  2. TAMOXIFIN (TAMOXIFEN) (TAMOXIFEN) [Concomitant]
  3. MONOPRIL (FOSINOPRIL SODIUM) (FOSINOPRIL SODIUM) [Concomitant]
  4. HYDROCHLOROTHIAZIDE [Concomitant]

REACTIONS (8)
  - APHASIA [None]
  - CHILLS [None]
  - DIZZINESS [None]
  - FATIGUE [None]
  - HYPOTENSION [None]
  - PALPITATIONS [None]
  - PARAESTHESIA [None]
  - TREMOR [None]
